FAERS Safety Report 23600990 (Version 1)
Quarter: 2024Q1

REPORT INFORMATION
  Report Type: Spontaneous
  Country: US (occurrence: US)
  Receive Date: 20240306
  Receipt Date: 20240306
  Transmission Date: 20240410
  Serious: Yes (Other)
  Sender: FDA-Public Use
  Company Number: US-JNJFOC-20240271703

PATIENT
  Age: 75 Year
  Sex: Male

DRUGS (5)
  1. TALQUETAMAB [Suspect]
     Active Substance: TALQUETAMAB
     Indication: Plasma cell myeloma
     Dosage: DAY 1
     Route: 065
  2. TALQUETAMAB [Suspect]
     Active Substance: TALQUETAMAB
     Dosage: DAY 3
     Route: 065
  3. TALQUETAMAB [Suspect]
     Active Substance: TALQUETAMAB
     Dosage: DAY 5
     Route: 065
  4. TALQUETAMAB [Suspect]
     Active Substance: TALQUETAMAB
     Dosage: DAY 7
     Route: 065
  5. TALQUETAMAB [Suspect]
     Active Substance: TALQUETAMAB
     Dosage: FULL DOSE ON DAY 7
     Route: 065

REACTIONS (2)
  - Tumour flare [Recovered/Resolved]
  - Cytokine release syndrome [Recovered/Resolved]
